FAERS Safety Report 21157245 (Version 1)
Quarter: 2022Q3

REPORT INFORMATION
  Report Type: Spontaneous
  Country: US (occurrence: None)
  Receive Date: 20220730
  Receipt Date: 20220730
  Transmission Date: 20221027
  Serious: Yes (Disabling)
  Sender: FDA-Public Use
  Company Number: None

PATIENT
  Age: 61 Year
  Sex: Female

DRUGS (7)
  1. XANAX [Suspect]
     Active Substance: ALPRAZOLAM
     Indication: Stress
     Dosage: OTHER QUANTITY : 1 TABLET(S);?
     Route: 048
  2. XANAX [Suspect]
     Active Substance: ALPRAZOLAM
     Indication: Anxiety
  3. ATENOLOL [Concomitant]
     Active Substance: ATENOLOL
  4. Kate Farms nutrient drinks [Concomitant]
  5. digestive enzymes [Concomitant]
  6. GAS-X [Concomitant]
     Active Substance: DIMETHICONE
  7. SENNA [Concomitant]
     Active Substance: SENNA LEAF\SENNOSIDES\SENNOSIDES A AND B

REACTIONS (8)
  - Withdrawal syndrome [None]
  - Dependence [None]
  - Depersonalisation/derealisation disorder [None]
  - Vision blurred [None]
  - Abdominal distension [None]
  - Nausea [None]
  - Anxiety [None]
  - Job dissatisfaction [None]

NARRATIVE: CASE EVENT DATE: 20210203
